FAERS Safety Report 25809879 (Version 1)
Quarter: 2025Q3

REPORT INFORMATION
  Report Type: Spontaneous
  Country: US (occurrence: US)
  Receive Date: 20250917
  Receipt Date: 20250917
  Transmission Date: 20251021
  Serious: No
  Sender: SANOFI AVENTIS
  Company Number: US-SANOFI-02655377

PATIENT
  Age: 63 Year
  Sex: Female
  Weight: 90 kg

DRUGS (2)
  1. FABRAZYME [Suspect]
     Active Substance: AGALSIDASE BETA
     Indication: Fabry^s disease
     Dosage: 95 MG, QOW
     Route: 042
     Dates: start: 20171212
  2. FABRAZYME [Suspect]
     Active Substance: AGALSIDASE BETA
     Dosage: 90 MG, QOW (1MG/KG)
     Route: 042
     Dates: start: 20250826

REACTIONS (1)
  - Off label use [Unknown]

NARRATIVE: CASE EVENT DATE: 20171212
